FAERS Safety Report 7294325-2 (Version None)
Quarter: 2011Q1

REPORT INFORMATION
  Report Type: 
  Country: None (occurrence: None)
  Receive Date: 20110215
  Receipt Date: 20110207
  Transmission Date: 20110831
  Serious: Yes (Other)
  Sender: FDA-Public Use
  Company Number: US-US-EMD SERONO, INC.-7041178

PATIENT
  Sex: Female

DRUGS (3)
  1. NEURONTIN [Concomitant]
     Indication: MUSCLE SPASTICITY
  2. REBIF [Suspect]
     Indication: MULTIPLE SCLEROSIS
     Route: 058
     Dates: start: 20101026
  3. ADVIL [Concomitant]
     Indication: PREMEDICATION

REACTIONS (6)
  - MULTIPLE SCLEROSIS RELAPSE [None]
  - INJECTION SITE PAIN [None]
  - FATIGUE [None]
  - ADRENAL DISORDER [None]
  - MUSCLE SPASTICITY [None]
  - BACK PAIN [None]
